FAERS Safety Report 8496627-0 (Version None)
Quarter: 2012Q3

REPORT INFORMATION
  Report Type: 
  Country: None (occurrence: None)
  Receive Date: 20120709
  Receipt Date: 20120702
  Transmission Date: 20120928
  Serious: Yes (Hospitalization)
  Sender: FDA-Public Use
  Company Number: FR-B.I. PHARMACEUTICALS,INC./RIDGEFIELD-2012-FF-00763FF

PATIENT
  Age: 83 Year
  Sex: Female
  Weight: 92 kg

DRUGS (7)
  1. LEVOTHYROXINE SODIUM [Concomitant]
  2. FLUCONAZOLE [Suspect]
     Indication: FUNGAL INFECTION
     Dosage: 50 MG
     Route: 048
     Dates: start: 20120512, end: 20120519
  3. POTASSIUM CHLORIDE [Concomitant]
  4. BISOPROLOL FUMARATE [Concomitant]
  5. LASIX [Concomitant]
  6. ATORVASTATIN [Concomitant]
  7. PRADAXA [Suspect]
     Indication: ATRIAL FIBRILLATION
     Dosage: 220 MG
     Route: 048
     Dates: start: 20120430, end: 20120519

REACTIONS (6)
  - GAMMA-GLUTAMYLTRANSFERASE INCREASED [None]
  - GENERAL PHYSICAL HEALTH DETERIORATION [None]
  - DECREASED APPETITE [None]
  - HEPATITIS [None]
  - DYSPEPSIA [None]
  - TRANSAMINASES INCREASED [None]
